FAERS Safety Report 6633819-7 (Version None)
Quarter: 2010Q1

REPORT INFORMATION
  Report Type: 
  Country: None (occurrence: None)
  Receive Date: 20100315
  Receipt Date: 20100224
  Transmission Date: 20100710
  Serious: No
  Sender: FDA-Public Use
  Company Number: US-JNJFOC-20100210933

PATIENT
  Sex: Female
  Weight: 79.83 kg

DRUGS (9)
  1. FENTANYL-100 [Suspect]
     Indication: NECK PAIN
     Route: 062
  2. FENTANYL-100 [Suspect]
     Indication: BACK PAIN
     Route: 062
  3. FLEXERIL [Concomitant]
     Indication: PAIN
     Route: 048
  4. LAMICTAL CD [Concomitant]
     Indication: DEPRESSION
     Route: 048
  5. GEMFIBROZIL [Concomitant]
     Indication: BLOOD CHOLESTEROL ABNORMAL
     Route: 048
  6. RESTORIL [Concomitant]
     Indication: SLEEP DISORDER
     Route: 048
  7. TRAZODONE HCL [Concomitant]
     Indication: SLEEP DISORDER
     Route: 048
  8. XANAX [Concomitant]
     Indication: PAIN
     Route: 048
  9. NORCO [Concomitant]
     Indication: PAIN
     Dosage: 10/325MG
     Route: 048

REACTIONS (6)
  - DIZZINESS [None]
  - DRUG DOSE OMISSION [None]
  - DYSKINESIA [None]
  - FEELING HOT [None]
  - NAUSEA [None]
  - PALPITATIONS [None]
